FAERS Safety Report 26136920 (Version 1)
Quarter: 2025Q4

REPORT INFORMATION
  Report Type: Spontaneous
  Country: JP (occurrence: JP)
  Receive Date: 20251209
  Receipt Date: 20251209
  Transmission Date: 20260117
  Serious: Yes (Other)
  Sender: TAIHO ONCOLOGY INC
  Company Number: JP-TAIHOP-2025-012431

PATIENT
  Age: 5 Decade
  Sex: Female

DRUGS (1)
  1. LONSURF [Suspect]
     Active Substance: TIPIRACIL HYDROCHLORIDE\TRIFLURIDINE
     Indication: Gastric cancer
     Dosage: FREQUENCY, FORM STRENGTH AND CYCLE UNKNOWN?DAILY DOSE: 80 MILLIGRAM(S)
     Route: 048
     Dates: start: 20251010, end: 20251021

REACTIONS (1)
  - Disease progression [Unknown]
